FAERS Safety Report 7778235-X (Version None)
Quarter: 2011Q3

REPORT INFORMATION
  Report Type: 
  Country: None (occurrence: None)
  Receive Date: 20110926
  Receipt Date: 20110920
  Transmission Date: 20111222
  Serious: Yes (Hospitalization)
  Sender: FDA-Public Use
  Company Number: US-BRISTOL-MYERS SQUIBB COMPANY-16076341

PATIENT
  Age: 79 Year
  Sex: Female
  Weight: 55 kg

DRUGS (2)
  1. IPILIMUMAB [Suspect]
     Indication: MALIGNANT MELANOMA
     Dosage: LAST DOSE ON 01SEP2011 (553 MG)
     Route: 042
     Dates: start: 20110630
  2. LEUKINE [Suspect]
     Indication: MALIGNANT MELANOMA
     Dosage: LAST DOSE ON 14SEP2011, TOTAL DOSE TO DATE= 14 MG
     Route: 058
     Dates: start: 20110630

REACTIONS (4)
  - HYPONATRAEMIA [None]
  - FALL [None]
  - DEHYDRATION [None]
  - PYREXIA [None]
